FAERS Safety Report 6936570-9 (Version None)
Quarter: 2010Q3

REPORT INFORMATION
  Report Type: 
  Country: None (occurrence: None)
  Receive Date: 20100818
  Receipt Date: 20100810
  Transmission Date: 20110219
  Serious: Yes (Hospitalization, Disabling, Other)
  Sender: FDA-Public Use
  Company Number: 669072

PATIENT
  Age: 71 Year
  Sex: Male

DRUGS (2)
  1. AMINOCAPROIC ACID [Suspect]
     Indication: GASTROINTESTINAL HAEMORRHAGE
  2. (OTHER HAEMATOLOGICAL AGENTS) [Suspect]
     Indication: GASTROINTESTINAL HAEMORRHAGE

REACTIONS (6)
  - CHOROIDAL DETACHMENT [None]
  - PERIORBITAL OEDEMA [None]
  - POTENTIATING DRUG INTERACTION [None]
  - VENOUS THROMBOSIS [None]
  - VISUAL ACUITY REDUCED [None]
  - VISUAL ACUITY TESTS ABNORMAL [None]
